FAERS Safety Report 6529223-2 (Version None)
Quarter: 2010Q1

REPORT INFORMATION
  Report Type: 
  Country: None (occurrence: None)
  Receive Date: 20100107
  Receipt Date: 20091228
  Transmission Date: 20100710
  Serious: Yes (Death, Hospitalization, Other)
  Sender: FDA-Public Use
  Company Number: US-ROCHE-668909

PATIENT
  Sex: Male

DRUGS (5)
  1. PEGASYS [Suspect]
     Indication: HEPATITIS C
     Route: 065
     Dates: start: 20090717, end: 20091107
  2. RIBAPAK [Suspect]
     Indication: HEPATITIS C
     Route: 065
     Dates: start: 20090717, end: 20091107
  3. INSULIN [Concomitant]
  4. COZAAR [Concomitant]
  5. FINASTERIDE [Concomitant]

REACTIONS (16)
  - ACUTE RESPIRATORY FAILURE [None]
  - AFFECTIVE DISORDER [None]
  - ASCITES [None]
  - DECREASED APPETITE [None]
  - DIARRHOEA [None]
  - FATIGUE [None]
  - HEPATIC CIRRHOSIS [None]
  - INCOHERENT [None]
  - PALLOR [None]
  - PANCYTOPENIA [None]
  - PERSONALITY CHANGE [None]
  - RHABDOMYOLYSIS [None]
  - SEPSIS [None]
  - SEPTIC SHOCK [None]
  - SLUGGISHNESS [None]
  - WEIGHT INCREASED [None]
